FAERS Safety Report 10573222 (Version 1)
Quarter: 2014Q4

REPORT INFORMATION
  Report Type: Spontaneous
  Country: US (occurrence: None)
  Receive Date: 20141107
  Receipt Date: 20141107
  Transmission Date: 20150529
  Serious: No
  Sender: FDA-Public Use
  Company Number: None

PATIENT
  Age: 35 Year
  Sex: Female

DRUGS (1)
  1. ENBREL [Suspect]
     Active Substance: ETANERCEPT
     Indication: ANKYLOSING SPONDYLITIS
     Dosage: SHOT; GIVEN INTO/UNDER THE SKIN

REACTIONS (3)
  - Injection site pain [None]
  - Skin discolouration [None]
  - Injection site rash [None]

NARRATIVE: CASE EVENT DATE: 20141106
